FAERS Safety Report 4624784-2 (Version None)
Quarter: 2005Q1

REPORT INFORMATION
  Report Type: 
  Country: None (occurrence: None)
  Receive Date: 20050107
  Receipt Date: 20041025
  Transmission Date: 20050727
  Serious: No
  Sender: FDA-Public Use
  Company Number: 235350K04USA

PATIENT
  Age: 58 Year
  Sex: Female

DRUGS (5)
  1. REBIF [Suspect]
     Indication: MULTIPLE SCLEROSIS
     Dosage: 44 MCG, 3 IN 1 WEEKS, SUBCUTANEOUS
     Route: 058
     Dates: start: 20041011
  2. LIPITOR [Concomitant]
  3. X [Concomitant]
  4. X [Concomitant]
  5. X [Concomitant]

REACTIONS (4)
  - BLOOD CHOLESTEROL INCREASED [None]
  - HYPERCHOLESTEROLAEMIA [None]
  - INCONTINENCE [None]
  - URINARY INCONTINENCE [None]
